FAERS Safety Report 25698282 (Version 1)
Quarter: 2025Q3

REPORT INFORMATION
  Report Type: Spontaneous
  Country: CA (occurrence: CA)
  Receive Date: 20250819
  Receipt Date: 20250819
  Transmission Date: 20251021
  Serious: Yes (Death)
  Sender: ROCHE
  Company Number: CA-ROCHE-10000364588

PATIENT
  Sex: Female

DRUGS (6)
  1. RITUXIMAB [Suspect]
     Active Substance: RITUXIMAB
     Indication: Myasthenia gravis
     Route: 065
  2. CYCLOPHOSPHAMIDE [Suspect]
     Active Substance: CYCLOPHOSPHAMIDE
     Indication: Product used for unknown indication
     Route: 065
  3. FILGRASTIM [Suspect]
     Active Substance: FILGRASTIM
     Indication: Haematopoietic stem cell mobilisation
     Route: 065
  4. BOS TAURUS ADRENAL CORTEX CORTICOSTEROIDS [Concomitant]
     Active Substance: BOS TAURUS ADRENAL CORTEX CORTICOSTEROIDS
     Indication: Myasthenia gravis
  5. AZATHIOPRINE [Concomitant]
     Active Substance: AZATHIOPRINE
     Indication: Myasthenia gravis
  6. BUSULFAN [Concomitant]
     Active Substance: BUSULFAN

REACTIONS (10)
  - Cardiac failure [Fatal]
  - Compression fracture [Fatal]
  - Cystitis bacterial [Fatal]
  - Cystitis viral [Fatal]
  - Cytomegalovirus viraemia [Fatal]
  - Escherichia bacteraemia [Fatal]
  - Off label use [Fatal]
  - Pneumonia [Fatal]
  - Respiratory failure [Fatal]
  - Staphylococcal sepsis [Fatal]
